FAERS Safety Report 6796052-4 (Version None)
Quarter: 2010Q2

REPORT INFORMATION
  Report Type: 
  Country: None (occurrence: None)
  Receive Date: 20100625
  Receipt Date: 20100615
  Transmission Date: 20101027
  Serious: Yes (Hospitalization)
  Sender: FDA-Public Use
  Company Number: GR-JNJFOC-20100604813

PATIENT
  Age: 74 Year
  Sex: Male
  Weight: 80 kg

DRUGS (6)
  1. REMICADE [Suspect]
     Indication: PSORIASIS
     Route: 042
  2. RAMIPRIL [Concomitant]
     Indication: CORONARY ARTERY DISEASE
  3. METOPROLOL [Concomitant]
     Route: 048
  4. ATORVASTATIN [Concomitant]
     Route: 048
  5. RAMIPRIL/HYDROCHLORTHIAZID RATIOPHARM [Concomitant]
     Indication: CORONARY ARTERY DISEASE
  6. ACETYLSALICYLIC  ACID [Concomitant]
     Indication: CORONARY ARTERY DISEASE

REACTIONS (1)
  - CORONARY ARTERY STENOSIS [None]
